FAERS Safety Report 7335960-2 (Version None)
Quarter: 2011Q1

REPORT INFORMATION
  Report Type: 
  Country: None (occurrence: None)
  Receive Date: 20110307
  Receipt Date: 20110302
  Transmission Date: 20110831
  Serious: Yes (Other)
  Sender: FDA-Public Use
  Company Number: CHPA2011US03477

PATIENT
  Age: 66 Year
  Sex: Female

DRUGS (4)
  1. PRIVATE LABEL [Suspect]
     Dosage: 14 MG, QD
     Route: 062
  2. PRIVATE LABEL [Suspect]
     Dosage: 21 MG, QD
     Route: 062
  3. PRIVATE LABEL [Suspect]
     Dosage: 7 MG, QD
     Route: 062
  4. PRIVATE LABEL [Suspect]
     Indication: SMOKING CESSATION THERAPY
     Dosage: 21 MG, QD
     Route: 062

REACTIONS (4)
  - DYSPNOEA [None]
  - INCORRECT DOSE ADMINISTERED [None]
  - CHRONIC OBSTRUCTIVE PULMONARY DISEASE [None]
  - OVERDOSE [None]
